FAERS Safety Report 6386989-2 (Version None)
Quarter: 2009Q4

REPORT INFORMATION
  Report Type: 
  Country: None (occurrence: None)
  Receive Date: 20091002
  Receipt Date: 20090923
  Transmission Date: 20100525
  Serious: No
  Sender: FDA-Public Use
  Company Number: US-B.I. PHARMACEUTICALS,INC./RIDGEFIELD-2009-BP-11283BP

PATIENT
  Sex: Male

DRUGS (6)
  1. ZANTAC 75 [Suspect]
     Indication: GASTROOESOPHAGEAL REFLUX DISEASE
     Route: 048
     Dates: start: 20080101, end: 20081023
  2. SYNTHROID [Concomitant]
     Indication: HYPOTHYROIDISM
     Dates: start: 20040101
  3. LISINOPRIL [Concomitant]
     Indication: CORONARY ARTERY DISEASE
     Dates: start: 20010101
  4. PLAVIX [Concomitant]
     Indication: CORONARY ARTERY DISEASE
     Dates: start: 20010101
  5. TOPROL-XL [Concomitant]
     Indication: CORONARY ARTERY DISEASE
     Dates: start: 20010101
  6. ASPIRIN [Concomitant]
     Indication: CORONARY ARTERY DISEASE
     Dosage: 81 MG
     Route: 048
     Dates: start: 20010101

REACTIONS (2)
  - PROSTATOMEGALY [None]
  - URINARY RETENTION [None]
